FAERS Safety Report 9757709 (Version 3)
Quarter: 2014Q1

REPORT INFORMATION
  Report Type: Spontaneous
  Country: AU (occurrence: AU)
  Receive Date: 20131216
  Receipt Date: 20140120
  Transmission Date: 20141002
  Serious: Yes (Hospitalization, Other)
  Sender: FDA-Public Use
  Company Number: AU-BRISTOL-MYERS SQUIBB COMPANY-19889807

PATIENT
  Age: 43 Year
  Sex: Female

DRUGS (1)
  1. BYETTA [Suspect]
     Indication: TYPE 2 DIABETES MELLITUS
     Dosage: APRIL 13- STOPPED 12JUL13?RESTARTED :14JUL13 + STOPPED 20JUL13.
     Route: 058
     Dates: start: 201304, end: 20130720

REACTIONS (6)
  - Tremor [Recovered/Resolved]
  - Pruritus [Recovered/Resolved]
  - Anxiety [Recovered/Resolved]
  - Panic attack [Recovered/Resolved]
  - Circulatory collapse [Unknown]
  - Convulsion [Unknown]
